FAERS Safety Report 5645976-X (Version None)
Quarter: 2008Q1

REPORT INFORMATION
  Report Type: 
  Country: None (occurrence: None)
  Receive Date: 20080227
  Receipt Date: 20080218
  Transmission Date: 20080703
  Serious: Yes (Death)
  Sender: FDA-Public Use
  Company Number: GXKR2008US01742

PATIENT
  Age: 6 Year
  Sex: Male

DRUGS (5)
  1. CYCLOSPORINE [Suspect]
     Indication: PROPHYLAXIS AGAINST GRAFT VERSUS HOST DISEASE
  2. METHOTREXATE [Suspect]
     Indication: PROPHYLAXIS AGAINST GRAFT VERSUS HOST DISEASE
     Dosage: SHORT COURSE
  3. CYCLOPHOSPHAMIDE [Suspect]
     Indication: STEM CELL TRANSPLANT
  4. STEROID NOS(NO INGREDIENTS/SUBSTANCES) [Suspect]
     Indication: GRAFT VERSUS HOST DISEASE
  5. CIDOFOVIR(CIDOFOVIR) [Suspect]
     Indication: DIARRHOEA

REACTIONS (16)
  - ADENOVIRUS INFECTION [None]
  - APHASIA [None]
  - COMA [None]
  - CORD BLOOD TRANSPLANT THERAPY [None]
  - CSF PROTEIN DECREASED [None]
  - DEMYELINATION [None]
  - DYSARTHRIA [None]
  - ENCEPHALOPATHY [None]
  - GRAFT VERSUS HOST DISEASE [None]
  - MITOCHONDRIAL MYOPATHY ACQUIRED [None]
  - MYOCLONUS [None]
  - RESPIRATORY DISTRESS [None]
  - SUBDURAL EFFUSION [None]
  - SYNOVIAL FLUID WHITE BLOOD CELLS POSITIVE [None]
  - VIRAL DIARRHOEA [None]
  - VISION BLURRED [None]
